FAERS Safety Report 6264097-9 (Version None)
Quarter: 2009Q3

REPORT INFORMATION
  Report Type: 
  Country: None (occurrence: None)
  Receive Date: 20090710
  Receipt Date: 20090630
  Transmission Date: 20100115
  Serious: Yes (Hospitalization)
  Sender: FDA-Public Use
  Company Number: IT-ELI_LILLY_AND_COMPANY-IT200906006958

PATIENT
  Sex: Male

DRUGS (2)
  1. GEMZAR [Suspect]
     Indication: LUNG CANCER METASTATIC
     Dosage: 1200 MG/M2, OTHER OR 2300 MG TOTAL ADMIN EVERY 21 DAYS
     Route: 042
     Dates: start: 20090605
  2. CISPLATIN [Concomitant]
     Indication: LUNG CANCER METASTATIC
     Dosage: 75 MG/M2, OTHER: 140 MG ONE ADMINISTRATION /21 DAYS
     Dates: start: 20090605, end: 20090626

REACTIONS (2)
  - ANGINA PECTORIS [None]
  - MYOCARDIAL ISCHAEMIA [None]
